FAERS Safety Report 18434809 (Version 1)
Quarter: 2020Q4

REPORT INFORMATION
  Report Type: Spontaneous
  Country: FR (occurrence: FR)
  Receive Date: 20201027
  Receipt Date: 20201027
  Transmission Date: 20210114
  Serious: Yes (Other)
  Sender: FDA-Public Use
  Company Number: FR-JAZZ-2020-FR-009617

PATIENT

DRUGS (1)
  1. XYREM [Suspect]
     Active Substance: SODIUM OXYBATE
     Indication: NARCOLEPSY
     Dosage: 180 GRAMS, EVERY 4 DAY/FINISHED IN 4 DAYS
     Route: 048

REACTIONS (3)
  - Overdose [Unknown]
  - Intentional product misuse [Unknown]
  - Drug dependence [Not Recovered/Not Resolved]
